FAERS Safety Report 10891787 (Version 2)
Quarter: 2015Q1

REPORT INFORMATION
  Report Type: Spontaneous
  Country: FR (occurrence: FR)
  Receive Date: 20150306
  Receipt Date: 20150309
  Transmission Date: 20150721
  Serious: Yes (Hospitalization)
  Sender: FDA-Public Use
  Company Number: FR-JNJFOC-20150214785

PATIENT
  Age: 40 Year
  Sex: Female

DRUGS (6)
  1. BIPRETERAX [Concomitant]
     Active Substance: INDAPAMIDE\PERINDOPRIL
     Dosage: 5 MG/1.25 MG
     Route: 065
  2. LEVEMIR [Concomitant]
     Active Substance: INSULIN DETEMIR
     Route: 065
  3. ATENOLOL. [Concomitant]
     Active Substance: ATENOLOL
     Route: 065
  4. CRESTOR [Concomitant]
     Active Substance: ROSUVASTATIN CALCIUM
     Route: 065
  5. CAELYX [Suspect]
     Active Substance: DOXORUBICIN HYDROCHLORIDE
     Indication: BREAST CANCER METASTATIC
     Route: 042
     Dates: start: 20150120, end: 20150120
  6. METFORMINE [Concomitant]
     Active Substance: METFORMIN HYDROCHLORIDE
     Route: 065

REACTIONS (4)
  - Bronchospasm [Recovered/Resolved]
  - Anaphylactoid reaction [Recovered/Resolved]
  - Urticaria [Recovered/Resolved]
  - Pharyngeal disorder [Recovered/Resolved]

NARRATIVE: CASE EVENT DATE: 20150120
